FAERS Safety Report 5485641-5 (Version None)
Quarter: 2007Q4

REPORT INFORMATION
  Report Type: 
  Country: None (occurrence: None)
  Receive Date: 20071011
  Receipt Date: 20071003
  Transmission Date: 20080405
  Serious: Yes (Hospitalization)
  Sender: FDA-Public Use
  Company Number: US020212

PATIENT
  Age: 22 Year
  Sex: Female

DRUGS (2)
  1. MODIODAL [Suspect]
     Indication: HYPERSOMNIA
     Dosage: 100 MG QD ORAL
     Route: 048
     Dates: start: 20050101, end: 20070101
  2. COMBINED ORAL CONTRACEPTIVE [Suspect]
     Dosage: ORAL
     Route: 048

REACTIONS (2)
  - ISCHAEMIC STROKE [None]
  - PROTEIN S DECREASED [None]
